FAERS Safety Report 14875496 (Version 1)
Quarter: 2018Q2

REPORT INFORMATION
  Report Type: Spontaneous
  Country: GB (occurrence: FR)
  Receive Date: 20180510
  Receipt Date: 20180510
  Transmission Date: 20180711
  Serious: Yes (Death, Other)
  Sender: FDA-Public Use
  Company Number: FR-FRESENIUS KABI-FK201805534

PATIENT
  Age: 74 Year
  Sex: Male

DRUGS (2)
  1. CARBOPLATIN (MANUFACTURER UNKNOWN) [Suspect]
     Active Substance: CARBOPLATIN
     Indication: BRONCHIAL CARCINOMA
     Route: 042
     Dates: start: 20180308, end: 20180308
  2. ALIMTA [Interacting]
     Active Substance: PEMETREXED DISODIUM
     Indication: BRONCHIAL CARCINOMA
     Route: 042
     Dates: start: 20180308, end: 20180308

REACTIONS (4)
  - Febrile bone marrow aplasia [Unknown]
  - Oral fungal infection [Not Recovered/Not Resolved]
  - Drug interaction [Unknown]
  - Septic shock [Fatal]

NARRATIVE: CASE EVENT DATE: 20180308
